FAERS Safety Report 16964942 (Version 1)
Quarter: 2019Q4

REPORT INFORMATION
  Report Type: Spontaneous
  Country: US (occurrence: US)
  Receive Date: 20191028
  Receipt Date: 20191028
  Transmission Date: 20200122
  Serious: Yes (Hospitalization, Other)
  Sender: FDA-Public Use
  Company Number: US-SCIEGEN PHARMACEUTICALS INC-2019SCILIT00283

PATIENT
  Age: 78 Year
  Sex: Female

DRUGS (4)
  1. FLECAINIDE [Suspect]
     Active Substance: FLECAINIDE
  2. ENALAPRIL [Suspect]
     Active Substance: ENALAPRIL
  3. HYDROCHLOROTHIAZIDE TABLETS [Suspect]
     Active Substance: HYDROCHLOROTHIAZIDE
  4. SODIUM BICARBONATE. [Interacting]
     Active Substance: SODIUM BICARBONATE

REACTIONS (3)
  - Renal injury [Recovering/Resolving]
  - Bradycardia [Recovered/Resolved]
  - Hyponatraemia [Recovered/Resolved]
